FAERS Safety Report 5222193-9 (Version None)
Quarter: 2007Q1

REPORT INFORMATION
  Report Type: 
  Country: None (occurrence: None)
  Receive Date: 20070129
  Receipt Date: 20060913
  Transmission Date: 20070707
  Serious: No
  Sender: FDA-Public Use
  Company Number: 2006-04939

PATIENT
  Sex: Male

DRUGS (3)
  1. BUPROPION HCL [Suspect]
     Indication: DEPRESSION
     Dosage: 200MG SINGLE DOSE
     Route: 048
     Dates: start: 20060801, end: 20060901
  2. DEPAKOTE [Concomitant]
     Indication: BIPOLAR DISORDER
  3. TRAZODONE HCL [Concomitant]
     Indication: DEPRESSION

REACTIONS (1)
  - SOMNOLENCE [None]
